FAERS Safety Report 7155337-2 (Version None)
Quarter: 2010Q4

REPORT INFORMATION
  Report Type: 
  Country: None (occurrence: None)
  Receive Date: 20101214
  Receipt Date: 20101206
  Transmission Date: 20110411
  Serious: Yes (Hospitalization)
  Sender: FDA-Public Use
  Company Number: US-BIOGENIDEC-2010BI042806

PATIENT
  Age: 60 Year
  Sex: Male

DRUGS (2)
  1. TYSABRI [Suspect]
     Indication: MULTIPLE SCLEROSIS
     Route: 042
     Dates: start: 20081020
  2. TYSABRI [Suspect]
     Route: 042
     Dates: start: 20080618, end: 20080618

REACTIONS (4)
  - CATHETER SITE HAEMORRHAGE [None]
  - DYSPHAGIA [None]
  - GASTRITIS HAEMORRHAGIC [None]
  - URINARY TRACT INFECTION [None]
